FAERS Safety Report 7285264-1 (Version None)
Quarter: 2011Q1

REPORT INFORMATION
  Report Type: 
  Country: None (occurrence: None)
  Receive Date: 20110210
  Receipt Date: 20110128
  Transmission Date: 20110831
  Serious: Yes (Hospitalization, Other)
  Sender: FDA-Public Use
  Company Number: GB-BAYER-201038635GPV

PATIENT
  Age: 64 Year
  Sex: Male
  Weight: 101 kg

DRUGS (11)
  1. KOGENATE [Suspect]
     Dosage: UNK
     Route: 040
     Dates: start: 20100604, end: 20100620
  2. KOGENATE [Suspect]
     Dosage: UNK
     Route: 040
     Dates: start: 20100628, end: 20100720
  3. KOGENATE [Suspect]
  4. GLUCOPHAGE [Concomitant]
     Indication: DIABETES MELLITUS
  5. KOGENATE [Suspect]
  6. KOGENATE [Suspect]
     Dosage: UNK
     Route: 040
     Dates: start: 20100628, end: 20100720
  7. KOGENATE [Suspect]
     Dosage: UNK
     Route: 040
     Dates: start: 20100628, end: 20100720
  8. KOGENATE [Suspect]
     Dosage: UNK
     Route: 040
     Dates: start: 20100628, end: 20100720
  9. KOGENATE [Suspect]
     Dosage: UNK
     Route: 040
     Dates: start: 20100628, end: 20100720
  10. KOGENATE [Suspect]
     Dosage: UNK
     Route: 040
     Dates: start: 20100628, end: 20100720
  11. KOGENATE [Suspect]
     Dosage: UNK
     Route: 040
     Dates: start: 20100604, end: 20100620

REACTIONS (2)
  - FACTOR VIII INHIBITION [None]
  - HAEMORRHAGE [None]
